FAERS Safety Report 24736543 (Version 4)
Quarter: 2025Q4

REPORT INFORMATION
  Report Type: Report from Study
  Country: JP (occurrence: JP)
  Receive Date: 20241216
  Receipt Date: 20251014
  Transmission Date: 20260117
  Serious: Yes (Hospitalization, Other)
  Sender: UCB
  Company Number: JP-UCBJ-CD202412243UCBPHAPROD

PATIENT
  Age: 12 Year
  Weight: 26.6 kg

DRUGS (21)
  1. FENFLURAMINE HYDROCHLORIDE [Suspect]
     Active Substance: FENFLURAMINE HYDROCHLORIDE
     Indication: Lennox-Gastaut syndrome
     Dosage: 0.05 MILLIGRAM/KILOGRAM, 2X/DAY (BID)
  2. FENFLURAMINE HYDROCHLORIDE [Suspect]
     Active Substance: FENFLURAMINE HYDROCHLORIDE
     Dosage: 0.1 MILLIGRAM/KILOGRAM, 2X/DAY (BID)
  3. FENFLURAMINE HYDROCHLORIDE [Suspect]
     Active Substance: FENFLURAMINE HYDROCHLORIDE
     Dosage: 0.15 MILLIGRAM/KILOGRAM, 2X/DAY (BID)
  4. FENFLURAMINE HYDROCHLORIDE [Suspect]
     Active Substance: FENFLURAMINE HYDROCHLORIDE
     Dosage: 0.2 MILLIGRAM/KILOGRAM, 2X/DAY (BID)
  5. FENFLURAMINE HYDROCHLORIDE [Suspect]
     Active Substance: FENFLURAMINE HYDROCHLORIDE
     Dosage: 0.25 MILLIGRAM/KILOGRAM, 2X/DAY (BID)
  6. FENFLURAMINE HYDROCHLORIDE [Suspect]
     Active Substance: FENFLURAMINE HYDROCHLORIDE
     Dosage: 0.3 MILLIGRAM/KILOGRAM, 2X/DAY (BID)
  7. FENFLURAMINE HYDROCHLORIDE [Suspect]
     Active Substance: FENFLURAMINE HYDROCHLORIDE
     Dosage: 0.35 MILLIGRAM/KILOGRAM, 2X/DAY (BID)
  8. FENFLURAMINE HYDROCHLORIDE [Suspect]
     Active Substance: FENFLURAMINE HYDROCHLORIDE
     Dosage: 0.3 MILLIGRAM/KILOGRAM, 2X/DAY (BID)
  9. PREDNISOLONE [Concomitant]
     Active Substance: PREDNISOLONE
     Indication: Product used for unknown indication
     Dosage: UNK
  10. PREDNISOLONE [Concomitant]
     Active Substance: PREDNISOLONE
     Dosage: UNK
  11. FYCOMPA [Concomitant]
     Active Substance: PERAMPANEL
     Indication: Lennox-Gastaut syndrome
     Dosage: 7.5 MILLIGRAM, ONCE DAILY (QD)
  12. TOPIRAMATE [Concomitant]
     Active Substance: TOPIRAMATE
     Indication: Lennox-Gastaut syndrome
     Dosage: 130 MILLIGRAM, ONCE DAILY (QD)
  13. TOPIRAMATE [Concomitant]
     Active Substance: TOPIRAMATE
     Dosage: 160 MILLIGRAM, ONCE DAILY (QD)
  14. TOPIRAMATE [Concomitant]
     Active Substance: TOPIRAMATE
     Dosage: 190 MILLIGRAM, ONCE DAILY (QD)
  15. INOVELON [Concomitant]
     Active Substance: RUFINAMIDE
     Indication: Lennox-Gastaut syndrome
     Dosage: 1000 MILLIGRAM, ONCE DAILY (QD)
  16. LEVOMEPROMAZINE [Concomitant]
     Active Substance: LEVOMEPROMAZINE
     Indication: Product used for unknown indication
     Dosage: 15 MILLIGRAM, ONCE DAILY (QD)
  17. RISPERDAL [Concomitant]
     Active Substance: RISPERIDONE
     Indication: Product used for unknown indication
     Dosage: 0.6 MILLIGRAM, ONCE DAILY (QD)
  18. MELATOBEL [Concomitant]
     Indication: Product used for unknown indication
     Dosage: 1 MILLIGRAM, ONCE DAILY (QD)
  19. MELATOBEL [Concomitant]
     Dosage: 1.5 MILLIGRAM, ONCE DAILY (QD)
  20. PHENOBARBITAL [Concomitant]
     Active Substance: PHENOBARBITAL
     Indication: Lennox-Gastaut syndrome
     Dosage: 90 MILLIGRAM, ONCE DAILY (QD)
  21. PHENOBARBITAL [Concomitant]
     Active Substance: PHENOBARBITAL
     Dosage: 120 MILLIGRAM, ONCE DAILY (QD)

REACTIONS (4)
  - Seizure cluster [Recovered/Resolved]
  - Prescribed underdose [Unknown]
  - Off label use [Unknown]
  - Therapeutic response decreased [Unknown]
